FAERS Safety Report 7627214-1 (Version None)
Quarter: 2011Q3

REPORT INFORMATION
  Report Type: 
  Country: None (occurrence: None)
  Receive Date: 20110714
  Receipt Date: 20110701
  Transmission Date: 20111222
  Serious: Yes (Hospitalization)
  Sender: FDA-Public Use
  Company Number: JP-2011-11081

PATIENT
  Age: 76 Year
  Sex: Male
  Weight: 72 kg

DRUGS (6)
  1. CILOSTAZOL [Suspect]
     Indication: INTERMITTENT CLAUDICATION
  2. NOOTROPIL (PIRACETAM) [Concomitant]
  3. ACETYLSALICYLIC ACID SRT [Suspect]
  4. COZAAR [Concomitant]
  5. EURICON (BENZBROMARONE) [Concomitant]
  6. DIPHENIDOL (DIFENIDOL HYDROCHLORIDE) [Concomitant]

REACTIONS (1)
  - GASTRIC ULCER HAEMORRHAGE [None]
